FAERS Safety Report 5683346-9 (Version None)
Quarter: 2008Q1

REPORT INFORMATION
  Report Type: 
  Country: None (occurrence: None)
  Receive Date: 20080326
  Receipt Date: 20080312
  Transmission Date: 20080703
  Serious: Yes (Other)
  Sender: FDA-Public Use
  Company Number: 232460J08USA

PATIENT
  Age: 48 Year
  Sex: Female

DRUGS (4)
  1. REBIF [Suspect]
     Indication: MULTIPLE SCLEROSIS
     Dosage: 44 MCG, 3 IN 1 WEEKS, SUBCUTANEOUS
     Route: 058
     Dates: start: 20070907
  2. LITHIUM (LITHIUM /00033701/) [Suspect]
     Indication: BIPOLAR DISORDER
     Dates: end: 20071101
  3. TEGRETOL [Concomitant]
  4. WELLBUTRIN [Concomitant]

REACTIONS (1)
  - RENAL FAILURE [None]
